FAERS Safety Report 18911038 (Version 1)
Quarter: 2021Q1

REPORT INFORMATION
  Report Type: Report from Study
  Country: US (occurrence: US)
  Receive Date: 20210218
  Receipt Date: 20210218
  Transmission Date: 20210420
  Serious: Yes (Hospitalization, Other)
  Sender: FDA-Public Use
  Company Number: US-GILEAD-2021-0512991

PATIENT
  Age: 15 Year
  Sex: Male

DRUGS (15)
  1. BETHKIS [Concomitant]
     Active Substance: TOBRAMYCIN
  2. NOVOLOG [Concomitant]
     Active Substance: INSULIN ASPART
  3. MONTELUKAST [Concomitant]
     Active Substance: MONTELUKAST SODIUM
  4. PREDNISONE. [Concomitant]
     Active Substance: PREDNISONE
  5. AZTREONAM LYSINE [Suspect]
     Active Substance: AZTREONAM LYSINE
     Indication: CYSTIC FIBROSIS
     Dosage: 1 VIAL, TID, FOR 28 DAYS ON AND 28 DAYS OFF
     Route: 055
     Dates: start: 20181025
  6. CREON [Concomitant]
     Active Substance: PANCRELIPASE AMYLASE\PANCRELIPASE LIPASE\PANCRELIPASE PROTEASE
  7. PULMOZYME [Concomitant]
     Active Substance: DORNASE ALFA
  8. DULERA [Concomitant]
     Active Substance: FORMOTEROL FUMARATE DIHYDRATE\MOMETASONE FUROATE
  9. LANTUS [Concomitant]
     Active Substance: INSULIN GLARGINE
  10. CYPROHEPTADINE. [Concomitant]
     Active Substance: CYPROHEPTADINE
  11. PREVACID [Concomitant]
     Active Substance: LANSOPRAZOLE
  12. PROAIR HFA [Concomitant]
     Active Substance: ALBUTEROL SULFATE
  13. SODIUM CHLORIDE. [Concomitant]
     Active Substance: SODIUM CHLORIDE
  14. AZITHROMYCIN ANHYDROUS. [Concomitant]
     Active Substance: AZITHROMYCIN ANHYDROUS
  15. MVW COMPLETE FORMULATION D3000 [Concomitant]
     Active Substance: VITAMINS\ZINC

REACTIONS (2)
  - Cystic fibrosis [Recovered/Resolved]
  - Product use issue [Unknown]

NARRATIVE: CASE EVENT DATE: 20210112
